FAERS Safety Report 5945560-4 (Version None)
Quarter: 2008Q4

REPORT INFORMATION
  Report Type: 
  Country: None (occurrence: None)
  Receive Date: 20081107
  Receipt Date: 20081029
  Transmission Date: 20090506
  Serious: No
  Sender: FDA-Public Use
  Company Number: US-B.I. PHARMACEUTICALS,INC./RIDGEFIELD-2008-BP-16554BP

PATIENT
  Age: 9 Year
  Sex: Female
  Weight: 35 kg

DRUGS (3)
  1. ZANTAC 75 [Suspect]
     Indication: ABDOMINAL PAIN
     Dosage: 150MG
     Route: 048
     Dates: start: 20081022
  2. ZANTAC 75 [Suspect]
     Indication: DYSPEPSIA
     Dosage: 150MG
     Route: 048
     Dates: start: 20081022
  3. ZANTAC 75 [Suspect]
     Indication: GASTROOESOPHAGEAL REFLUX DISEASE
     Dosage: 150MG
     Route: 048
     Dates: start: 20081022

REACTIONS (1)
  - FAECES HARD [None]
